FAERS Safety Report 6250130-7 (Version None)
Quarter: 2009Q2

REPORT INFORMATION
  Report Type: 
  Country: None (occurrence: None)
  Receive Date: 20090626
  Receipt Date: 20090624
  Transmission Date: 20091009
  Serious: Yes (Life-Threatening, Hospitalization, Disabling)
  Sender: FDA-Public Use
  Company Number: SP02400

PATIENT
  Age: 63 Year
  Sex: Male
  Weight: 63.9572 kg

DRUGS (6)
  1. OSMOPREP [Suspect]
     Indication: COLONOSCOPY
     Dosage: 32 TABLETS SPLIT DOSE REGIMEN, ORAL
     Route: 048
     Dates: start: 20090521, end: 20090522
  2. MIRTAZAPINE [Concomitant]
  3. LEVOTHYROXINE [Concomitant]
  4. METFORMIN [Concomitant]
  5. ASPIRIN [Concomitant]
  6. MULTI-VITAMIN [Concomitant]

REACTIONS (16)
  - BRADYCARDIA [None]
  - CONVULSION [None]
  - DEMYELINATION [None]
  - FALL [None]
  - HYPOCALCAEMIA [None]
  - HYPOKALAEMIA [None]
  - HYPONATRAEMIA [None]
  - HYPOTENSION [None]
  - INAPPROPRIATE SCHEDULE OF DRUG ADMINISTRATION [None]
  - INSOMNIA [None]
  - LUNG INFILTRATION [None]
  - SKIN LACERATION [None]
  - STUPOR [None]
  - TARDIVE DYSKINESIA [None]
  - TONIC CLONIC MOVEMENTS [None]
  - UNRESPONSIVE TO STIMULI [None]
